FAERS Safety Report 4697928-4 (Version None)
Quarter: 2005Q2

REPORT INFORMATION
  Report Type: 
  Country: None (occurrence: None)
  Receive Date: 20050623
  Receipt Date: 20050615
  Transmission Date: 20051028
  Serious: Yes (Other)
  Sender: FDA-Public Use
  Company Number: JP-BOEHRINGER INGELHEIM PHARMACEUTICALS, INC.-2005-DE-02272GD

PATIENT
  Age: 5 Year
  Sex: Female

DRUGS (2)
  1. MEXITIL [Suspect]
     Indication: VENTRICULAR ARRHYTHMIA
  2. PROPRANOLOL [Suspect]
     Indication: VENTRICULAR ARRHYTHMIA

REACTIONS (2)
  - DRUG INEFFECTIVE [None]
  - SYNCOPE [None]
